FAERS Safety Report 21158615 (Version 1)
Quarter: 2022Q3

REPORT INFORMATION
  Report Type: Spontaneous
  Country: US (occurrence: US)
  Receive Date: 20220802
  Receipt Date: 20220802
  Transmission Date: 20221027
  Serious: No
  Sender: FDA-Public Use
  Company Number: US-BAUSCH-BL-2022-018612

PATIENT
  Sex: Female

DRUGS (1)
  1. OPCON-A [Suspect]
     Active Substance: NAPHAZOLINE HYDROCHLORIDE\PHENIRAMINE MALEATE
     Indication: Dry eye
     Dosage: 1 GTT, AS NEEDED
     Route: 047

REACTIONS (2)
  - Instillation site pain [Recovered/Resolved]
  - Instillation site paraesthesia [Recovered/Resolved]
